FAERS Safety Report 8182171-7 (Version None)
Quarter: 2012Q1

REPORT INFORMATION
  Report Type: 
  Country: None (occurrence: None)
  Receive Date: 20120302
  Receipt Date: 20120118
  Transmission Date: 20120608
  Serious: Yes (Other)
  Sender: FDA-Public Use
  Company Number: US-ROCHE-1012889

PATIENT
  Sex: Female
  Weight: 89.438 kg

DRUGS (18)
  1. OMALIZUMAB [Suspect]
     Indication: ASTHMA
     Dosage: DATE OF LAST DOSE PRIOR TO SAE: 03/NOV/2011
     Route: 058
     Dates: start: 20100715
  2. OMALIZUMAB [Suspect]
     Route: 058
     Dates: start: 20110825
  3. OMALIZUMAB [Suspect]
     Route: 058
     Dates: start: 20111121
  4. OMALIZUMAB [Suspect]
     Route: 058
     Dates: start: 20111215
  5. ELAVIL [Concomitant]
     Indication: MIGRAINE
  6. QVAR 40 [Concomitant]
     Indication: ASTHMA
  7. CITALOPRAM HYDROBROMIDE [Concomitant]
     Indication: AFFECTIVE DISORDER
  8. OMALIZUMAB [Suspect]
     Route: 058
     Dates: start: 20110811
  9. OMALIZUMAB [Suspect]
     Route: 058
     Dates: start: 20110922
  10. OMALIZUMAB [Suspect]
     Route: 058
     Dates: start: 20111103
  11. OMALIZUMAB [Suspect]
     Route: 058
     Dates: start: 20110908
  12. OMALIZUMAB [Suspect]
     Route: 058
     Dates: start: 20111013
  13. OMALIZUMAB [Suspect]
     Route: 058
     Dates: start: 20111201
  14. OMALIZUMAB [Suspect]
     Route: 058
     Dates: start: 20120105
  15. IMITREX [Concomitant]
     Indication: MIGRAINE
  16. VENTOLIN [Concomitant]
     Indication: ASTHMA
  17. ABILIFY [Concomitant]
     Indication: DEPRESSION
  18. AMBIEN [Concomitant]
     Indication: INSOMNIA

REACTIONS (2)
  - MATERNAL EXPOSURE DURING PREGNANCY [None]
  - ABORTION SPONTANEOUS [None]
